FAERS Safety Report 15568470 (Version 1)
Quarter: 2018Q4

REPORT INFORMATION
  Report Type: Spontaneous
  Country: DE (occurrence: DE)
  Receive Date: 20181031
  Receipt Date: 20181031
  Transmission Date: 20190205
  Serious: Yes (Hospitalization)
  Sender: FDA-Public Use
  Company Number: DE-TAKEDA-2018TUS031309

PATIENT
  Age: 38 Year
  Sex: Male

DRUGS (2)
  1. ADENURIC [Suspect]
     Active Substance: FEBUXOSTAT
     Indication: HYPERURICAEMIA
     Dosage: 80 MG, QD
     Route: 048
  2. ORTOTON                            /00047901/ [Suspect]
     Active Substance: METHOCARBAMOL
     Indication: PAIN
     Dosage: UNK
     Route: 048
     Dates: start: 20180420, end: 20180420

REACTIONS (7)
  - Fatigue [Recovered/Resolved]
  - Flushing [Recovered/Resolved]
  - Nausea [Recovered/Resolved]
  - Pyrexia [Recovered/Resolved]
  - Swelling face [Recovered/Resolved]
  - Limb discomfort [Recovered/Resolved]
  - Headache [Recovered/Resolved]

NARRATIVE: CASE EVENT DATE: 20180420
